FAERS Safety Report 11529716 (Version 13)
Quarter: 2017Q3

REPORT INFORMATION
  Report Type: Report from Study
  Country: US (occurrence: US)
  Receive Date: 20150921
  Receipt Date: 20170830
  Transmission Date: 20171127
  Serious: Yes (Life-Threatening, Hospitalization, Disabling)
  Sender: FDA-Public Use
  Company Number: US-ROCHE-1634823

PATIENT
  Age: 78 Year
  Sex: Male
  Weight: 72.1 kg

DRUGS (15)
  1. NORMAL SALINE [Concomitant]
     Active Substance: SODIUM CHLORIDE
     Indication: DEHYDRATION
     Route: 040
     Dates: start: 20151012, end: 20151012
  2. DEXAMETHASONE. [Concomitant]
     Active Substance: DEXAMETHASONE
     Indication: MUCOSAL INFLAMMATION
     Route: 048
     Dates: start: 20150917
  3. ASPIRIN. [Concomitant]
     Active Substance: ASPIRIN
     Dosage: INDICATION: CARDIAC HEALTH
     Route: 048
     Dates: start: 2005
  4. COZAAR [Concomitant]
     Active Substance: LOSARTAN POTASSIUM
     Indication: BLOOD PRESSURE INCREASED
     Route: 048
     Dates: start: 20150611
  5. ATEZOLIZUMAB. [Suspect]
     Active Substance: ATEZOLIZUMAB
     Indication: RENAL CELL CARCINOMA
     Dosage: DATE OF MOST RECENT DOSE (1200 MG) PRIOR TO SAE ONSET: 31/AUG/2015.
     Route: 042
     Dates: start: 20150831
  6. PROSCAR [Concomitant]
     Active Substance: FINASTERIDE
     Indication: POLLAKIURIA
     Route: 048
     Dates: start: 20140421
  7. SYNTHROID [Concomitant]
     Active Substance: LEVOTHYROXINE SODIUM
     Indication: HYPOTHYROIDISM
     Route: 048
     Dates: start: 20141231
  8. PRILOSEC [Concomitant]
     Active Substance: OMEPRAZOLE MAGNESIUM
     Indication: GASTROOESOPHAGEAL REFLUX DISEASE
     Route: 048
     Dates: start: 20150512
  9. ZOCOR [Concomitant]
     Active Substance: SIMVASTATIN
     Indication: ANGIOPATHY
     Route: 048
     Dates: start: 20150512
  10. NORVASC [Concomitant]
     Active Substance: AMLODIPINE BESYLATE
     Indication: BLOOD PRESSURE INCREASED
     Route: 048
     Dates: start: 2008
  11. COUMADIN [Concomitant]
     Active Substance: WARFARIN SODIUM
     Dosage: INDICATION: ANIT-COAGULATION.
     Route: 048
     Dates: start: 20150527
  12. MYCOSTATIN [Concomitant]
     Active Substance: NYSTATIN
     Indication: MUCOSAL INFLAMMATION
     Dosage: STRENGTH:500,000 UNITS/5 ML
     Route: 048
     Dates: start: 20150913
  13. MAGNESIUM OXIDE. [Concomitant]
     Active Substance: MAGNESIUM OXIDE
     Indication: BLOOD MAGNESIUM DECREASED
     Route: 048
     Dates: start: 20151013
  14. BEVACIZUMAB. [Suspect]
     Active Substance: BEVACIZUMAB
     Indication: RENAL CELL CARCINOMA
     Dosage: DATE OF MOST RECENT DOSE (400 MG) PRIOR TO SAE ONSET: 31/AUG/2015.
     Route: 042
     Dates: start: 20150831
  15. CALCIUM CITRATE WITH VITAMIN D3 [Concomitant]
     Dosage: INDICATION: BONE HEALTH.
     Route: 048
     Dates: start: 2005

REACTIONS (1)
  - Systemic inflammatory response syndrome [Recovered/Resolved]

NARRATIVE: CASE EVENT DATE: 20150907
